FAERS Safety Report 7904892-0 (Version None)
Quarter: 2011Q4

REPORT INFORMATION
  Report Type: 
  Country: None (occurrence: None)
  Receive Date: 20111109
  Receipt Date: 20111031
  Transmission Date: 20120403
  Serious: Yes (Other)
  Sender: FDA-Public Use
  Company Number: PHHY2011JP76537

PATIENT

DRUGS (2)
  1. PAXIL [Concomitant]
     Dosage: UNK UKN, UNK
     Route: 048
  2. RITALIN [Suspect]
     Dosage: UNK UKN, UNK
     Route: 048

REACTIONS (4)
  - THINKING ABNORMAL [None]
  - AGITATION [None]
  - ABNORMAL BEHAVIOUR [None]
  - FALL [None]
